FAERS Safety Report 15801479 (Version 2)
Quarter: 2019Q1

REPORT INFORMATION
  Report Type: Spontaneous
  Country: TR (occurrence: TR)
  Receive Date: 20190109
  Receipt Date: 20190122
  Transmission Date: 20190417
  Serious: Yes (Other)
  Sender: FDA-Public Use
  Company Number: TR-AMGEN-TURSP2018175361

PATIENT
  Age: 50 Year
  Sex: Male

DRUGS (5)
  1. SALAZOPYRIN [Concomitant]
     Active Substance: SULFASALAZINE
     Dosage: UNK
  2. LANSOR [Concomitant]
     Active Substance: LANSOPRAZOLE
     Dosage: UNK
  3. ENBREL [Suspect]
     Active Substance: ETANERCEPT
     Indication: ANKYLOSING SPONDYLITIS
     Dosage: 50 MG, WEEKLY
     Route: 058
     Dates: start: 20180905
  4. INH [Concomitant]
     Active Substance: ISONIAZID
     Dosage: UNK
  5. VOLTAREN [Concomitant]
     Active Substance: DICLOFENAC SODIUM
     Dosage: UNK

REACTIONS (7)
  - Influenza [Unknown]
  - Fall [Unknown]
  - Rhinorrhoea [Unknown]
  - Limb crushing injury [Unknown]
  - Nasal discharge discolouration [Unknown]
  - Contusion [Unknown]
  - Asthenia [Unknown]

NARRATIVE: CASE EVENT DATE: 20181201
